FAERS Safety Report 25455113 (Version 1)
Quarter: 2025Q2

REPORT INFORMATION
  Report Type: Spontaneous
  Country: FR (occurrence: FR)
  Receive Date: 20250619
  Receipt Date: 20250619
  Transmission Date: 20250717
  Serious: Yes (Other)
  Sender: CHEPLAPHARM
  Company Number: None

PATIENT
  Age: 90 Year
  Sex: Male
  Weight: 63 kg

DRUGS (5)
  1. QUETIAPINE [Suspect]
     Active Substance: QUETIAPINE
     Indication: Dementia Alzheimer^s type
     Dosage: FORME LI?DAILY DOSE: 100 MILLIGRAM
     Route: 048
     Dates: start: 20250324, end: 20250403
  2. QUETIAPINE [Suspect]
     Active Substance: QUETIAPINE
     Indication: Neuropsychological symptoms
     Dosage: FORME LI?DAILY DOSE: 100 MILLIGRAM
     Route: 048
     Dates: start: 20250324, end: 20250403
  3. QUETIAPINE [Suspect]
     Active Substance: QUETIAPINE
     Indication: Dementia Alzheimer^s type
  4. QUETIAPINE [Suspect]
     Active Substance: QUETIAPINE
     Indication: Neuropsychological symptoms
  5. TIAPRIDE HYDROCHLORIDE [Concomitant]
     Active Substance: TIAPRIDE HYDROCHLORIDE
     Dates: end: 20250327

REACTIONS (4)
  - Depressed level of consciousness [Recovered/Resolved]
  - Malaise [Unknown]
  - Product availability issue [Unknown]
  - Off label use [Recovered/Resolved]

NARRATIVE: CASE EVENT DATE: 20250301
